FAERS Safety Report 9312619 (Version 1)
Quarter: 2013Q2

REPORT INFORMATION
  Report Type: Spontaneous
  Country: PT (occurrence: PT)
  Receive Date: 20130528
  Receipt Date: 20130528
  Transmission Date: 20140414
  Serious: Yes (Other)
  Sender: FDA-Public Use
  Company Number: PT-BRISTOL-MYERS SQUIBB COMPANY-18920959

PATIENT
  Age: 45 Year
  Sex: Male

DRUGS (1)
  1. REYATAZ CAPS 300 MG [Suspect]
     Route: 048
     Dates: start: 20090206

REACTIONS (2)
  - Dysphagia [Not Recovered/Not Resolved]
  - Drug administration error [Unknown]
